FAERS Safety Report 5232476-4 (Version None)
Quarter: 2007Q1

REPORT INFORMATION
  Report Type: 
  Country: None (occurrence: None)
  Receive Date: 20070207
  Receipt Date: 20070125
  Transmission Date: 20070707
  Serious: Yes (Hospitalization)
  Sender: FDA-Public Use
  Company Number: ES-ELI_LILLY_AND_COMPANY-ES200702000460

PATIENT
  Age: 50 Year
  Sex: Female

DRUGS (6)
  1. OLANZAPINE [Suspect]
     Dosage: 2.5 MG, DAILY (1/D)
  2. VALSARTAN [Concomitant]
  3. CLONAZEPAM [Concomitant]
     Dosage: 0.5 MG, DAILY (1/D)
  4. VENLAFAXINE HCL [Concomitant]
     Dosage: 150 MG, DAILY (1/D)
  5. LITHIUM CARBONATE [Concomitant]
     Dosage: 800 MG, DAILY (1/D)
  6. IMIPRAMINE [Concomitant]
     Dosage: 150 MG, DAILY (1/D)

REACTIONS (3)
  - ANXIETY [None]
  - PERIPHERAL EMBOLISM [None]
  - PULMONARY EMBOLISM [None]
